FAERS Safety Report 10508884 (Version 1)
Quarter: 2014Q3

REPORT INFORMATION
  Report Type: Spontaneous
  Country: US (occurrence: None)
  Receive Date: 20140915
  Receipt Date: 20140915
  Transmission Date: 20150326
  Serious: Yes (Other)
  Sender: FDA-Public Use
  Company Number: JPI-P-034642

PATIENT
  Age: 37 Year
  Sex: Female
  Weight: 100 kg

DRUGS (3)
  1. VILAZODONE HYDROCHLORIDE [Concomitant]
     Active Substance: VILAZODONE HYDROCHLORIDE
  2. XYREM [Suspect]
     Active Substance: SODIUM OXYBATE
     Indication: CATAPLEXY
     Dosage: SINGLE
     Route: 048
     Dates: start: 201307, end: 2013
  3. XYREM [Suspect]
     Active Substance: SODIUM OXYBATE
     Indication: NARCOLEPSY
     Dosage: SINGLE
     Route: 048
     Dates: start: 201307, end: 2013

REACTIONS (5)
  - Choking [None]
  - Diarrhoea [None]
  - Sleep apnoea syndrome [None]
  - Headache [None]
  - Fatigue [None]

NARRATIVE: CASE EVENT DATE: 201308
